FAERS Safety Report 18793493 (Version 39)
Quarter: 2022Q4

REPORT INFORMATION
  Report Type: Spontaneous
  Country: GB (occurrence: GB)
  Receive Date: 20210127
  Receipt Date: 20221202
  Transmission Date: 20230112
  Serious: Yes (Death, Hospitalization, Other)
  Sender: FDA-Public Use
  Company Number: GB-MYLANLABS-2019M1117808

PATIENT
  Age: 59 Year
  Sex: Male
  Weight: 62 kg

DRUGS (145)
  1. DOCETAXEL [Suspect]
     Active Substance: DOCETAXEL
     Indication: Breast cancer metastatic
     Dosage: 110 MG, CYCLIC (EVERY 3 WEEKS)
     Dates: start: 20150930, end: 20151021
  2. DOCETAXEL [Suspect]
     Active Substance: DOCETAXEL
     Dosage: UNK
     Dates: start: 20151222
  3. DOCETAXEL [Suspect]
     Active Substance: DOCETAXEL
     Dosage: 220 MG
  4. LORAZEPAM [Suspect]
     Active Substance: LORAZEPAM
     Indication: Schizophrenia
     Dosage: 1 MG
     Route: 048
  5. LORAZEPAM [Suspect]
     Active Substance: LORAZEPAM
     Dosage: UNK
     Route: 048
  6. TRASTUZUMAB [Suspect]
     Active Substance: TRASTUZUMAB
     Indication: Breast cancer metastatic
     Dosage: 1218 MG, WEEKLY
     Dates: start: 20150930
  7. TRASTUZUMAB [Suspect]
     Active Substance: TRASTUZUMAB
     Dosage: 609 MG, CYCLIC (EVERY 3 WEEKS)
     Dates: start: 20150930
  8. TRASTUZUMAB [Suspect]
     Active Substance: TRASTUZUMAB
     Dosage: 420 MG, EVERY 3 WEEKS
  9. TRASTUZUMAB [Suspect]
     Active Substance: TRASTUZUMAB
     Dosage: 840 MG, CYCLIC (EVERY 3 WEEKS)
  10. PACLITAXEL [Suspect]
     Active Substance: PACLITAXEL
     Dosage: 120 MG
     Dates: start: 20151223, end: 20151223
  11. PACLITAXEL [Suspect]
     Active Substance: PACLITAXEL
     Dosage: 150 MG
     Dates: start: 20151111, end: 20151222
  12. OLANZAPINE [Suspect]
     Active Substance: OLANZAPINE
     Indication: Schizophrenia
     Dosage: 15 MG
     Route: 065
     Dates: start: 20040217
  13. OLANZAPINE [Suspect]
     Active Substance: OLANZAPINE
     Dosage: 15 MG
     Dates: start: 20060704
  14. OLANZAPINE [Suspect]
     Active Substance: OLANZAPINE
     Dosage: 2.5 MG
     Dates: start: 20080823
  15. OLANZAPINE [Suspect]
     Active Substance: OLANZAPINE
     Dosage: 10 MG
  16. OLANZAPINE [Suspect]
     Active Substance: OLANZAPINE
     Dosage: 1 MG
     Route: 048
  17. OLANZAPINE [Suspect]
     Active Substance: OLANZAPINE
     Dosage: 10 MG
     Route: 065
  18. OLANZAPINE [Suspect]
     Active Substance: OLANZAPINE
     Dosage: 10 MG
     Route: 065
  19. OLANZAPINE [Suspect]
     Active Substance: OLANZAPINE
     Dosage: 10 MG
     Route: 065
  20. OLANZAPINE [Suspect]
     Active Substance: OLANZAPINE
     Dosage: UNK
     Route: 065
  21. RISPERDAL [Suspect]
     Active Substance: RISPERIDONE
     Indication: Schizophrenia
     Dosage: 3 MG, 2X/DAY
  22. RISPERDAL [Suspect]
     Active Substance: RISPERIDONE
     Dosage: 1 G, 1X/DAY
  23. RISPERDAL [Suspect]
     Active Substance: RISPERIDONE
     Dosage: 2 MG, 2X/DAY
  24. RISPERDAL [Suspect]
     Active Substance: RISPERIDONE
     Dosage: 1 MG, 1X/DAY
  25. RISPERDAL [Suspect]
     Active Substance: RISPERIDONE
     Dosage: 2 MG, 2X/DAY
  26. RISPERDAL [Suspect]
     Active Substance: RISPERIDONE
     Dosage: 3 MG, 2X/DAY
  27. RISPERDAL [Suspect]
     Active Substance: RISPERIDONE
     Dosage: UNK
  28. RISPERDAL [Suspect]
     Active Substance: RISPERIDONE
     Dosage: 1 MG, 1X/DAY
     Route: 048
  29. RISPERDAL [Suspect]
     Active Substance: RISPERIDONE
     Dosage: 2 MG, 2X/DAY
     Route: 065
  30. RISPERDAL [Suspect]
     Active Substance: RISPERIDONE
     Dosage: 3 MG, 2X/DAY
     Route: 048
  31. RISPERDAL [Suspect]
     Active Substance: RISPERIDONE
     Dosage: 1 G, 1X/DAY
     Route: 065
  32. RISPERDAL [Suspect]
     Active Substance: RISPERIDONE
     Dosage: 4 MG, 1X/DAY
     Route: 065
  33. RISPERDAL [Suspect]
     Active Substance: RISPERIDONE
     Dosage: 6 MG, 1X/DAY
     Route: 048
  34. RISPERDAL [Suspect]
     Active Substance: RISPERIDONE
     Dosage: 2 MG
  35. RISPERDAL [Suspect]
     Active Substance: RISPERIDONE
     Dosage: 3 MG, 1X/DAY
     Route: 048
  36. ZUCLOPENTHIXOL ACETATE [Suspect]
     Active Substance: ZUCLOPENTHIXOL ACETATE
     Indication: Schizophrenia
     Dosage: 400 MG, CYCLIC (400 MG, BIWEEKLY)
     Dates: start: 20030204, end: 20040217
  37. ZUCLOPENTHIXOL ACETATE [Suspect]
     Active Substance: ZUCLOPENTHIXOL ACETATE
     Dosage: 400 MG, WEEKLY
     Dates: start: 20040217, end: 20040601
  38. ZUCLOPENTHIXOL ACETATE [Suspect]
     Active Substance: ZUCLOPENTHIXOL ACETATE
     Dosage: 400 MG, CYCLIC (400 MG, BIWEEKLY)
     Dates: start: 20040601, end: 20041018
  39. ZUCLOPENTHIXOL ACETATE [Suspect]
     Active Substance: ZUCLOPENTHIXOL ACETATE
     Dosage: 300 MG, WEEKLY
     Route: 030
     Dates: start: 20091018
  40. ZUCLOPENTHIXOL ACETATE [Suspect]
     Active Substance: ZUCLOPENTHIXOL ACETATE
     Dosage: 400 MG, BIWEEKLY
     Dates: start: 20041018, end: 20041018
  41. ZUCLOPENTHIXOL ACETATE [Suspect]
     Active Substance: ZUCLOPENTHIXOL ACETATE
     Dosage: 300 MG, 1X/DAY
     Route: 030
     Dates: start: 20091009
  42. ZUCLOPENTHIXOL ACETATE [Suspect]
     Active Substance: ZUCLOPENTHIXOL ACETATE
     Dosage: 400 MG, BIWEEKLY
     Route: 030
     Dates: start: 20091018
  43. ZUCLOPENTHIXOL ACETATE [Suspect]
     Active Substance: ZUCLOPENTHIXOL ACETATE
     Dosage: 400 MG, WEEKLY
     Route: 030
  44. ZUCLOPENTHIXOL ACETATE [Suspect]
     Active Substance: ZUCLOPENTHIXOL ACETATE
     Dosage: 300 MG 1X/WEEK (EVERY WEEK)
     Route: 030
     Dates: start: 20091018
  45. CLOZARIL [Suspect]
     Active Substance: CLOZAPINE
     Indication: Schizophrenia
     Dosage: 6000 MG
     Route: 048
     Dates: start: 20100823
  46. CLOZARIL [Suspect]
     Active Substance: CLOZAPINE
     Dosage: 1 DF, 1X/DAY
     Route: 048
     Dates: start: 2011
  47. CLOZARIL [Suspect]
     Active Substance: CLOZAPINE
     Dosage: 400 MG, 1X/DAY
     Route: 048
  48. CLOZARIL [Suspect]
     Active Substance: CLOZAPINE
     Dosage: 200 MG, 2X/DAY
     Route: 048
     Dates: start: 20191209, end: 20191223
  49. CLOZARIL [Suspect]
     Active Substance: CLOZAPINE
     Dosage: 275 MG, 1X/DAY
     Route: 048
     Dates: start: 20200521, end: 2020
  50. CLOZARIL [Suspect]
     Active Substance: CLOZAPINE
     Dosage: 50 MG, 1X/DAY
  51. CLOZARIL [Suspect]
     Active Substance: CLOZAPINE
     Dosage: 300 MG, 1X/DAY
     Route: 065
     Dates: start: 20191209, end: 20191223
  52. CLOZARIL [Suspect]
     Active Substance: CLOZAPINE
     Dosage: 100 MG, 1X/DAY
     Dates: end: 20191223
  53. CLOZARIL [Suspect]
     Active Substance: CLOZAPINE
     Dosage: 275 MG, 1X/DAY
     Dates: start: 20200521, end: 2020
  54. CLOZARIL [Suspect]
     Active Substance: CLOZAPINE
     Dosage: UNK
     Route: 048
     Dates: start: 20191223, end: 20191223
  55. CLOZARIL [Suspect]
     Active Substance: CLOZAPINE
     Dosage: 245 MG, 1X/DAY (AM)
     Dates: start: 2011
  56. CLOZARIL [Suspect]
     Active Substance: CLOZAPINE
     Dosage: 200 MG, 2X/DAY
     Route: 048
  57. CLOZARIL [Suspect]
     Active Substance: CLOZAPINE
     Dosage: UNK
     Route: 048
     Dates: start: 20200521, end: 2021
  58. CLOZARIL [Suspect]
     Active Substance: CLOZAPINE
     Dosage: 200 MG, 2X/DAY
     Route: 048
  59. CLOZARIL [Suspect]
     Active Substance: CLOZAPINE
     Dosage: 400 MG, DAILY
     Dates: start: 20191209, end: 20191223
  60. CLOZARIL [Suspect]
     Active Substance: CLOZAPINE
     Dosage: 245 MG
     Route: 048
     Dates: start: 20191209, end: 20191223
  61. CLOZARIL [Suspect]
     Active Substance: CLOZAPINE
     Dosage: 800 MG, 1X/DAY
     Route: 048
     Dates: start: 20100823
  62. CLOZARIL [Suspect]
     Active Substance: CLOZAPINE
     Dosage: 245 MG
     Route: 048
     Dates: start: 20200521
  63. CLOZARIL [Suspect]
     Active Substance: CLOZAPINE
     Dosage: 400 MG, 1X/DAY
     Route: 048
     Dates: start: 20201207
  64. CLOZARIL [Suspect]
     Active Substance: CLOZAPINE
     Dosage: 400 MG, DAILY
     Route: 048
     Dates: start: 20100823
  65. CLOZARIL [Suspect]
     Active Substance: CLOZAPINE
     Dosage: UNK
  66. CLOZARIL [Suspect]
     Active Substance: CLOZAPINE
     Dosage: 245 MG
     Route: 048
     Dates: start: 20191207, end: 20191207
  67. CLOZARIL [Suspect]
     Active Substance: CLOZAPINE
     Dosage: 100 MG, 1X/DAY
     Route: 065
  68. CLOZARIL [Suspect]
     Active Substance: CLOZAPINE
     Dosage: 6000 MG
     Route: 048
     Dates: start: 20200521
  69. CLOZARIL [Suspect]
     Active Substance: CLOZAPINE
     Dosage: 50 MG, 1X/DAY
     Route: 048
     Dates: start: 20191209, end: 20191223
  70. CLOZARIL [Suspect]
     Active Substance: CLOZAPINE
     Dosage: 300 MG, 1X/DAY
     Route: 048
  71. CLOZARIL [Suspect]
     Active Substance: CLOZAPINE
     Dosage: 400 MG, DAILY
     Route: 048
     Dates: start: 20201207
  72. CLOZARIL [Suspect]
     Active Substance: CLOZAPINE
     Dosage: 800 MG, 1X/DAY
     Route: 048
     Dates: start: 20201207
  73. CLOZARIL [Suspect]
     Active Substance: CLOZAPINE
     Dosage: 400 MG, DAILY
     Dates: start: 20191223, end: 20191223
  74. CLOZARIL [Suspect]
     Active Substance: CLOZAPINE
     Dosage: 100 MG
     Route: 065
  75. CLOZARIL [Suspect]
     Active Substance: CLOZAPINE
     Dosage: 800 MG, 1X/DAY
     Route: 048
  76. CLOZARIL [Suspect]
     Active Substance: CLOZAPINE
     Dosage: 300 MG, 1X/DAY
     Route: 048
     Dates: start: 20100823
  77. CLOZARIL [Suspect]
     Active Substance: CLOZAPINE
     Dosage: 245 MG
     Route: 048
     Dates: start: 20191223, end: 20191223
  78. CLOZARIL [Suspect]
     Active Substance: CLOZAPINE
     Dosage: 245 MG
     Route: 048
     Dates: start: 20100823, end: 20100823
  79. CLOZARIL [Suspect]
     Active Substance: CLOZAPINE
     Dosage: 275 MG, 1X/DAY
  80. CLOZARIL [Suspect]
     Active Substance: CLOZAPINE
     Dosage: 6000 MG
     Route: 048
     Dates: start: 20191223, end: 20191223
  81. CLOZARIL [Suspect]
     Active Substance: CLOZAPINE
     Dosage: 400 MG, 2X/DAY
  82. CHLORPROMAZINE [Suspect]
     Active Substance: CHLORPROMAZINE
     Indication: Schizophrenia
     Dosage: 75 MG
  83. CHLORPROMAZINE [Suspect]
     Active Substance: CHLORPROMAZINE
     Dosage: 75 MG
     Route: 065
  84. HALOPERIDOL [Suspect]
     Active Substance: HALOPERIDOL
     Indication: Schizophrenia
     Dosage: 5 MG, 2X/DAY
     Route: 048
  85. HALOPERIDOL [Suspect]
     Active Substance: HALOPERIDOL
     Dosage: 10 MG, 2X/DAY
     Route: 048
  86. HALOPERIDOL [Suspect]
     Active Substance: HALOPERIDOL
     Dosage: 5 MG, 2X/DAY
     Route: 048
  87. HALOPERIDOL [Suspect]
     Active Substance: HALOPERIDOL
     Dosage: 10 MG, 2X/DAY
     Route: 048
  88. HALOPERIDOL [Suspect]
     Active Substance: HALOPERIDOL
     Dosage: 20 MG, 1X/DAY
     Route: 048
  89. HALOPERIDOL [Suspect]
     Active Substance: HALOPERIDOL
     Dosage: 20 MG, 1X/DAY
     Route: 048
  90. HALOPERIDOL [Suspect]
     Active Substance: HALOPERIDOL
     Dosage: 10 MG, 2X/DAY
     Route: 048
  91. HALOPERIDOL [Suspect]
     Active Substance: HALOPERIDOL
     Dosage: 10 MG, 1X/DAY
  92. HALOPERIDOL [Suspect]
     Active Substance: HALOPERIDOL
     Dosage: 5 MG, 1X/DAY
  93. HALOPERIDOL [Suspect]
     Active Substance: HALOPERIDOL
     Dosage: 10 MG, 1X/DAY
     Route: 048
  94. HALOPERIDOL [Suspect]
     Active Substance: HALOPERIDOL
     Dosage: 20 MG, 2X/DAY
     Route: 048
  95. HALOPERIDOL [Suspect]
     Active Substance: HALOPERIDOL
     Dosage: 5 MG, 1X/DAY
     Route: 048
  96. HALOPERIDOL [Suspect]
     Active Substance: HALOPERIDOL
     Dosage: 40 MG, QD,20MG BID
     Route: 048
  97. LITHIUM [Suspect]
     Active Substance: LITHIUM
     Indication: Schizophrenia
     Dosage: 1 G
     Route: 048
  98. LITHIUM [Suspect]
     Active Substance: LITHIUM
     Dosage: 2 G
  99. LITHIUM [Suspect]
     Active Substance: LITHIUM
     Dosage: 1 MG
     Route: 048
  100. LITHIUM [Suspect]
     Active Substance: LITHIUM
     Dosage: 6 MG, 1X/DAY
  101. LITHIUM [Suspect]
     Active Substance: LITHIUM
     Dosage: 1 G
     Route: 065
  102. LITHIUM [Suspect]
     Active Substance: LITHIUM
     Dosage: 6 MG, 1X/DAY
     Route: 065
  103. LITHIUM [Suspect]
     Active Substance: LITHIUM
     Dosage: 1 G
     Route: 065
  104. LITHIUM [Suspect]
     Active Substance: LITHIUM
     Dosage: 2 G
     Route: 048
  105. ARIPIPRAZOLE [Suspect]
     Active Substance: ARIPIPRAZOLE
     Indication: Schizophrenia
     Dosage: 5 MG
     Route: 065
  106. ZUCLOPENTHIXOL [Suspect]
     Active Substance: ZUCLOPENTHIXOL
     Dosage: 400 MG, BIWEEKLY
     Dates: start: 20040217, end: 20040601
  107. RISPERIDONE [Suspect]
     Active Substance: RISPERIDONE
     Indication: Schizophrenia
     Dosage: 2 MG, 2X/DAY
     Route: 065
  108. RISPERIDONE [Suspect]
     Active Substance: RISPERIDONE
     Dosage: 1 G, 1X/DAY
     Route: 048
  109. RISPERIDONE [Suspect]
     Active Substance: RISPERIDONE
     Dosage: 3 MG, 2X/DAY
     Route: 048
  110. RISPERIDONE [Suspect]
     Active Substance: RISPERIDONE
     Dosage: 1 MG, 1X/DAY
     Route: 048
  111. RISPERIDONE [Suspect]
     Active Substance: RISPERIDONE
     Dosage: 6 MG, 1X/DAY
     Route: 048
  112. RISPERIDONE [Suspect]
     Active Substance: RISPERIDONE
     Dosage: 4 MG, 1X/DAY
     Route: 048
  113. RISPERIDONE [Suspect]
     Active Substance: RISPERIDONE
     Dosage: 3 MG, 1X/DAY
     Route: 048
  114. ZUCLOPENTHIXOL HYDROCHLORIDE [Suspect]
     Active Substance: ZUCLOPENTHIXOL HYDROCHLORIDE
     Indication: Schizophrenia
     Dosage: 400 MG, WEEKLY
     Route: 030
     Dates: start: 20030204, end: 20040217
  115. ZUCLOPENTHIXOL HYDROCHLORIDE [Suspect]
     Active Substance: ZUCLOPENTHIXOL HYDROCHLORIDE
     Dosage: 400 MG, WEEKLY
     Dates: start: 20040217, end: 20040601
  116. ZUCLOPENTHIXOL HYDROCHLORIDE [Suspect]
     Active Substance: ZUCLOPENTHIXOL HYDROCHLORIDE
     Dosage: 400 MG, BIWEEKLY
     Route: 030
     Dates: start: 20030204, end: 20040217
  117. ZUCLOPENTHIXOL HYDROCHLORIDE [Suspect]
     Active Substance: ZUCLOPENTHIXOL HYDROCHLORIDE
     Dosage: 400 MG, BIWEEKLY
     Route: 030
     Dates: start: 20041018, end: 20041018
  118. ZUCLOPENTHIXOL HYDROCHLORIDE [Suspect]
     Active Substance: ZUCLOPENTHIXOL HYDROCHLORIDE
     Dosage: 300 MG, WEEKLY
     Route: 030
     Dates: start: 20091009
  119. ZUCLOPENTHIXOL HYDROCHLORIDE [Suspect]
     Active Substance: ZUCLOPENTHIXOL HYDROCHLORIDE
     Dosage: 300 MG, WEEKLY
     Route: 030
     Dates: start: 20091018
  120. ZUCLOPENTHIXOL HYDROCHLORIDE [Suspect]
     Active Substance: ZUCLOPENTHIXOL HYDROCHLORIDE
     Dosage: 400 MG, WEEKLY
  121. ZUCLOPENTHIXOL HYDROCHLORIDE [Suspect]
     Active Substance: ZUCLOPENTHIXOL HYDROCHLORIDE
     Dosage: 400 MG, BIWEEKLY
     Dates: start: 20040601, end: 20041018
  122. PERTUZUMAB [Suspect]
     Active Substance: PERTUZUMAB
     Indication: Breast cancer metastatic
     Dosage: 840 MG, CYCLIC (EVERY 3 WEEKS)
     Dates: start: 20150930
  123. PERTUZUMAB [Suspect]
     Active Substance: PERTUZUMAB
     Dosage: 2 IU, WEEKLY
  124. PERTUZUMAB [Suspect]
     Active Substance: PERTUZUMAB
     Dosage: 420 MG, CYCLIC (EVERY 3 WEEKS)
     Dates: start: 20151021
  125. PERTUZUMAB [Suspect]
     Active Substance: PERTUZUMAB
     Dosage: 420 MG, CYCLIC (EVERY 3 WEEKS)
  126. AMOXICILLIN\CLAVULANATE POTASSIUM [Concomitant]
     Active Substance: AMOXICILLIN\CLAVULANATE POTASSIUM
     Indication: Febrile neutropenia
     Dosage: 120 MG, OTHER (EVERY 9 WEEKS)
     Dates: start: 20151111
  127. AMOXICILLIN\CLAVULANATE POTASSIUM [Concomitant]
     Active Substance: AMOXICILLIN\CLAVULANATE POTASSIUM
     Dosage: 625 MG, 4X/DAY
     Dates: start: 20151122
  128. AMOXICILLIN\CLAVULANATE POTASSIUM [Concomitant]
     Active Substance: AMOXICILLIN\CLAVULANATE POTASSIUM
     Dosage: 625 MG (EVERY 0.33 DAYS)
     Dates: start: 20151122, end: 20151125
  129. RANITIDINE [Concomitant]
     Active Substance: RANITIDINE
     Indication: Gastrooesophageal reflux disease
     Dosage: 50 MG, WEEKLY
     Dates: start: 20151111
  130. RANITIDINE [Concomitant]
     Active Substance: RANITIDINE
     Dosage: 75 MG
  131. CALCIUM\CHOLECALCIFEROL [Concomitant]
     Active Substance: CALCIUM\CHOLECALCIFEROL
     Dosage: 2 DF, 1X/DAY
     Dates: start: 20091018
  132. PREGABALIN [Concomitant]
     Active Substance: PREGABALIN
     Dosage: 75 MG, 2X/DAY
     Dates: start: 201509
  133. MORPHINE [Concomitant]
     Active Substance: MORPHINE
     Indication: Pain
     Dosage: 30 MG, 2X/DAY
     Dates: start: 201509
  134. MORPHINE [Concomitant]
     Active Substance: MORPHINE
     Dosage: 15 MG, 1X/DAY
     Dates: start: 201510
  135. ORAMORPH SR SUSTAINED RELEASE [Concomitant]
     Active Substance: MORPHINE SULFATE
     Dosage: 10 MG
     Dates: start: 201509
  136. PIPERACILLIN SODIUM\TAZOBACTAM SODIUM [Concomitant]
     Active Substance: PIPERACILLIN SODIUM\TAZOBACTAM SODIUM
     Indication: Febrile neutropenia
     Dosage: UNK
     Dates: start: 20151121, end: 201511
  137. CHOLECALCIFEROL [Concomitant]
     Active Substance: CHOLECALCIFEROL
     Dosage: 2 DF, 1X/DAY
  138. MIRTAZAPINE [Concomitant]
     Active Substance: MIRTAZAPINE
     Dosage: 15 MG, DAILY
     Dates: start: 201510
  139. ACETAMINOPHEN [Concomitant]
     Active Substance: ACETAMINOPHEN
     Indication: Pain
     Dosage: 500 MG
     Route: 048
     Dates: start: 20150127
  140. DENOSUMAB [Concomitant]
     Active Substance: DENOSUMAB
     Dosage: 120 MG, CYCLIC (EVERY 9 WEEKS)
     Dates: start: 20150930
  141. CHLORPHENIRAMINE MALEATE [Concomitant]
     Active Substance: CHLORPHENIRAMINE MALEATE
     Dosage: 10 MG, WEEKLY
     Dates: start: 20151111
  142. TAZOBACTAM SODIUM [Concomitant]
     Active Substance: TAZOBACTAM SODIUM
     Indication: Febrile neutropenia
     Dosage: UNK
     Dates: start: 20151121
  143. LEVOFLOXACIN [Concomitant]
     Active Substance: LEVOFLOXACIN
     Indication: Febrile neutropenia
     Dosage: 500 MG, 1X/DAY
     Dates: start: 20151125
  144. GENTAMICIN [Concomitant]
     Active Substance: GENTAMICIN
     Indication: Febrile neutropenia
     Dosage: UNK
     Dates: start: 20151121, end: 201511
  145. DULOXETINE [Concomitant]
     Active Substance: DULOXETINE
     Dosage: UNK

REACTIONS (27)
  - Schizophrenia [Fatal]
  - Hallucination, auditory [Fatal]
  - Neutropenia [Fatal]
  - Off label use [Fatal]
  - Disease progression [Fatal]
  - Extrapyramidal disorder [Fatal]
  - Incorrect dose administered [Fatal]
  - Delusion of grandeur [Fatal]
  - Platelet count decreased [Fatal]
  - Affective disorder [Fatal]
  - Lymphocyte count decreased [Fatal]
  - Fatigue [Fatal]
  - Psychotic disorder [Fatal]
  - Neutrophil count increased [Fatal]
  - Leukopenia [Fatal]
  - Rhinalgia [Fatal]
  - Mucosal inflammation [Fatal]
  - Dyspepsia [Fatal]
  - Diarrhoea [Fatal]
  - Nausea [Fatal]
  - Cellulitis [Fatal]
  - Neuropathy peripheral [Fatal]
  - Fatigue [Fatal]
  - Alopecia [Fatal]
  - COVID-19 [Fatal]
  - Seizure [Fatal]
  - Overdose [Fatal]

NARRATIVE: CASE EVENT DATE: 20151101
